FAERS Safety Report 17780131 (Version 2)
Quarter: 2020Q2

REPORT INFORMATION
  Report Type: Report from Study
  Country: None (occurrence: US)
  Receive Date: 20200514
  Receipt Date: 20200607
  Transmission Date: 20200714
  Serious: Yes (Other)
  Sender: FDA-Public Use
  Company Number: US-ABBVIE-20K-163-3400032-00

PATIENT
  Sex: Male
  Weight: 113.95 kg

DRUGS (2)
  1. HUMIRA [Suspect]
     Active Substance: ADALIMUMAB
     Indication: HIDRADENITIS
     Route: 058
     Dates: start: 2017
  2. HUMIRA [Suspect]
     Active Substance: ADALIMUMAB
     Indication: PSORIASIS

REACTIONS (5)
  - Pain in extremity [Recovering/Resolving]
  - Hypertension [Unknown]
  - Foot deformity [Recovering/Resolving]
  - Diabetes mellitus [Unknown]
  - Glaucoma [Unknown]

NARRATIVE: CASE EVENT DATE: 2018
